FAERS Safety Report 7892176-9 (Version None)
Quarter: 2011Q4

REPORT INFORMATION
  Report Type: 
  Country: None (occurrence: None)
  Receive Date: 20111104
  Receipt Date: 20111026
  Transmission Date: 20120403
  Serious: Yes (Other)
  Sender: FDA-Public Use
  Company Number: US-ASTRAZENECA-2011SE41824

PATIENT
  Age: 60 Year
  Sex: Male

DRUGS (18)
  1. PRADAXA [Concomitant]
     Route: 048
  2. PRAVASTATIN SODIUM [Concomitant]
     Route: 048
  3. ZYRTEC [Concomitant]
     Route: 048
  4. NEXIUM [Suspect]
     Route: 048
  5. GLIMEPIRIDE [Concomitant]
     Route: 048
  6. TRILIPIX [Concomitant]
     Route: 048
  7. METOPROLOL TARTRATE [Concomitant]
     Route: 048
  8. GABAPENTIN [Concomitant]
  9. LOVAZA [Concomitant]
     Route: 048
  10. ASPIRIN [Concomitant]
  11. AMIODARONE HCL [Concomitant]
     Route: 048
  12. FUROSEMIDE [Concomitant]
     Route: 048
  13. HYDROCHLOROTHIAZIDE [Concomitant]
  14. ONGLYZA [Concomitant]
     Route: 048
  15. COMBIVENT [Concomitant]
     Dosage: 2 PUFFS DAILY AS NEEDED
     Route: 055
  16. DILTIAZEM HCL [Concomitant]
  17. ADVAIR DISKUS 100/50 [Concomitant]
     Dosage: 1 PUFF 2 A DAY
     Route: 055
  18. METFORMIN HCL [Concomitant]
     Dosage: 850 MG, 1 IN AM AND 2 AT DINNER
     Route: 048

REACTIONS (2)
  - MUSCULOSKELETAL CHEST PAIN [None]
  - VISUAL IMPAIRMENT [None]
